FAERS Safety Report 18534651 (Version 1)
Quarter: 2020Q4

REPORT INFORMATION
  Report Type: Report from Study
  Country: CA (occurrence: CA)
  Receive Date: 20201123
  Receipt Date: 20201123
  Transmission Date: 20210114
  Serious: Yes (Death, Other)
  Sender: FDA-Public Use
  Company Number: PHHY2017CA130148

PATIENT
  Age: 56 Year
  Sex: Female

DRUGS (8)
  1. SANDOSTATIN LAR DEPOT [Suspect]
     Active Substance: OCTREOTIDE ACETATE
     Indication: ACROMEGALY
     Dosage: 20 MG, QMO
     Route: 030
     Dates: start: 20141202
  2. SANDOSTATIN LAR DEPOT [Suspect]
     Active Substance: OCTREOTIDE ACETATE
     Dosage: 20 MG, QMO
     Route: 030
     Dates: start: 20190913
  3. TRAZODONE [Concomitant]
     Active Substance: TRAZODONE HYDROCHLORIDE
     Indication: PRODUCT USED FOR UNKNOWN INDICATION
     Dosage: 50 MG, QHS
     Route: 065
  4. SANDOSTATIN LAR DEPOT [Suspect]
     Active Substance: OCTREOTIDE ACETATE
     Dosage: 20 MG, QMO
     Route: 030
     Dates: start: 20201104
  5. SERTRALINE [Suspect]
     Active Substance: SERTRALINE HYDROCHLORIDE
     Indication: PRODUCT USED FOR UNKNOWN INDICATION
     Dosage: 100 MG, QD (EVERY MORNING)
     Route: 065
  6. SYNTHROID [Concomitant]
     Active Substance: LEVOTHYROXINE SODIUM
     Indication: PRODUCT USED FOR UNKNOWN INDICATION
     Dosage: UNK
     Route: 065
  7. PRAZIN [Concomitant]
     Indication: PRODUCT USED FOR UNKNOWN INDICATION
     Dosage: 2 MG, FIVE TIMES A DAY
     Route: 065
  8. SANDOSTATIN LAR DEPOT [Suspect]
     Active Substance: OCTREOTIDE ACETATE
     Dosage: 20 MG, QMO
     Route: 030

REACTIONS (32)
  - Thinking abnormal [Unknown]
  - Breast neoplasm [Unknown]
  - Lung disorder [Unknown]
  - Urticaria [Recovering/Resolving]
  - Weight increased [Unknown]
  - Post-traumatic stress disorder [Unknown]
  - Malaise [Unknown]
  - Pituitary tumour [Unknown]
  - Pain [Recovering/Resolving]
  - Endometriosis [Unknown]
  - Blood pressure abnormal [Unknown]
  - Injection site mass [Unknown]
  - Gait disturbance [Unknown]
  - Asthenia [Unknown]
  - Dyspnoea [Unknown]
  - Hypothyroidism [Unknown]
  - Arthritis [Unknown]
  - Borderline personality disorder [Unknown]
  - Heart rate decreased [Unknown]
  - Bone pain [Unknown]
  - Blood pressure increased [Unknown]
  - Anxiety [Unknown]
  - Memory impairment [Unknown]
  - Sensation of foreign body [Unknown]
  - Conjunctivitis [Unknown]
  - Syncope [Fatal]
  - Feeling abnormal [Unknown]
  - Hypoacusis [Unknown]
  - Personality disorder [Unknown]
  - Neoplasm [Unknown]
  - Speech disorder [Unknown]
  - Oropharyngeal discomfort [Unknown]

NARRATIVE: CASE EVENT DATE: 2014
